FAERS Safety Report 9486925 (Version 1)
Quarter: 2013Q3

REPORT INFORMATION
  Report Type: Spontaneous
  Country: GB (occurrence: None)
  Receive Date: 20130823
  Receipt Date: 20130823
  Transmission Date: 20140515
  Serious: Yes (Life-Threatening, Hospitalization)
  Sender: FDA-Public Use
  Company Number: AUR-APL-2013-06732

PATIENT
  Age: 63 Year
  Sex: Male

DRUGS (10)
  1. SERTRALINE [Suspect]
     Indication: PRODUCT USED FOR UNKNOWN INDICATION
     Dates: start: 20130606
  2. CARBAMAZEPINE [Suspect]
  3. ASCORBIC ACID [Concomitant]
  4. CITRIC ACID [Concomitant]
  5. CLEXANE (ENOXAPARIN SODIUM) [Concomitant]
  6. DIAZEPAM [Concomitant]
  7. FLUTICASONE PROPIONATE [Concomitant]
  8. HYOSCINE [Concomitant]
  9. LANSOPRAZOLE [Concomitant]
  10. SALBUTAMOL [Concomitant]

REACTIONS (1)
  - Neutropenia [None]
